FAERS Safety Report 22297213 (Version 1)
Quarter: 2023Q2

REPORT INFORMATION
  Report Type: Report from Study
  Country: US (occurrence: US)
  Receive Date: 20230509
  Receipt Date: 20230509
  Transmission Date: 20230722
  Serious: Yes (Other)
  Sender: FDA-Public Use
  Company Number: US-TAKEDA-2023TUS043812

PATIENT
  Sex: Female

DRUGS (2)
  1. IXAZOMIB [Suspect]
     Active Substance: IXAZOMIB
     Indication: Breast cancer female
     Dosage: 3 MILLIGRAM
     Route: 048
     Dates: start: 202303
  2. REVLIMID [Suspect]
     Active Substance: LENALIDOMIDE
     Indication: Breast cancer female
     Dosage: 15 MILLIGRAM, QD
     Route: 048
     Dates: start: 202303

REACTIONS (5)
  - Nephrolithiasis [Unknown]
  - Paraesthesia [Not Recovered/Not Resolved]
  - Burning sensation [Unknown]
  - Peripheral swelling [Unknown]
  - Off label use [Unknown]
